FAERS Safety Report 10958137 (Version 1)
Quarter: 2015Q1

REPORT INFORMATION
  Report Type: Spontaneous
  Country: US (occurrence: US)
  Receive Date: 20150326
  Receipt Date: 20150326
  Transmission Date: 20150721
  Serious: No
  Sender: FDA-Public Use
  Company Number: US-ELI_LILLY_AND_COMPANY-US201503007894

PATIENT
  Sex: Female

DRUGS (3)
  1. HUMULIN N [Suspect]
     Active Substance: INSULIN HUMAN
     Indication: PRODUCT USED FOR UNKNOWN INDICATION
     Dosage: UNK UNK, BID
     Route: 065
     Dates: start: 201409
  2. OXYCODONE [Concomitant]
     Active Substance: OXYCODONE
  3. INSULIN HUMAN [Suspect]
     Active Substance: INSULIN HUMAN
     Indication: PRODUCT USED FOR UNKNOWN INDICATION
     Dosage: UNK
     Route: 065
     Dates: start: 201409

REACTIONS (7)
  - Burning sensation [Unknown]
  - Skin haemorrhage [Unknown]
  - Pain in extremity [Unknown]
  - Insomnia [Unknown]
  - Skin wrinkling [Unknown]
  - Feeling hot [Unknown]
  - Erythema [Unknown]
